FAERS Safety Report 12777054 (Version 2)
Quarter: 2016Q3

REPORT INFORMATION
  Report Type: Spontaneous
  Country: FI (occurrence: FI)
  Receive Date: 20160923
  Receipt Date: 20160926
  Transmission Date: 20161109
  Serious: Yes (Death)
  Sender: FDA-Public Use
  Company Number: FI-009507513-1609FIN010823

PATIENT
  Age: 81 Year
  Sex: Female

DRUGS (13)
  1. JANUMET [Suspect]
     Active Substance: METFORMIN HYDROCHLORIDE\SITAGLIPTIN PHOSPHATE
     Indication: TYPE 2 DIABETES MELLITUS
     Dosage: 2 DF, QD; TOTAL DAILY DOSE: 100/2000 MG
     Route: 048
     Dates: start: 201504, end: 20160425
  2. BECLOMET EASYHALER [Concomitant]
     Dosage: INHALATION; STRENGTH;: 400 UG/DOSE; FREQUENCY: 1 X 2-4; TOTAL DAILY DOSE: 800-1600 UG
  3. FURESIS [Concomitant]
     Active Substance: FUROSEMIDE
     Dosage: FREQUENCY: 2 X 2
  4. BUVENTOL EASYHALER [Concomitant]
     Active Substance: ALBUTEROL SULFATE
     Dosage: INHALATION; STRENGTH: 200 UG/DOSE; FREQUENCY: 1-2 X 2-4 WHEN NEEDE; TOTAL DAILY DOSE: 400-1600 UG
  5. MICARDIS [Concomitant]
     Active Substance: TELMISARTAN
     Dosage: FREQUENCY: 1X1
  6. ALLONOL [Concomitant]
     Active Substance: ALLOPURINOL
     Dosage: FREQUENCY: 1 X 1
  7. BISOPROLOL ACTAVIS [Concomitant]
     Active Substance: BISOPROLOL
     Dosage: FREQUENCY: 1/2 X 1
  8. THYROXIN [Concomitant]
     Active Substance: LEVOTHYROXINE
  9. PEGORION [Concomitant]
     Dosage: FREQUENCY: 1 X 3
  10. BEMETSON K [Concomitant]
     Dosage: STRENGTH: 1/30 MG/G; FREQUENCY: 1 X 1-2 WHEN NEEDED
  11. OMEPRAZOL ACTAVIS [Concomitant]
     Active Substance: OMEPRAZOLE
     Dosage: FREQUENCY: 1 X 1
  12. PRIMASPAN [Concomitant]
     Active Substance: ASPIRIN
     Dosage: FREQUENCY: 1 X 1
  13. VISCOTEARS [Concomitant]
     Active Substance: CARBOMER
     Dosage: STRENGTH: 2 MG/G; FREQUENCY: 1 X 3-4

REACTIONS (10)
  - Sepsis [Fatal]
  - Renal failure [Fatal]
  - Lactic acidosis [Fatal]
  - Anaemia [Fatal]
  - Respiratory failure [Fatal]
  - Hypothermia [Fatal]
  - Dizziness [Fatal]
  - Cardiovascular insufficiency [Fatal]
  - Chest pain [Fatal]
  - Fall [Fatal]

NARRATIVE: CASE EVENT DATE: 20160425
